FAERS Safety Report 19915535 (Version 1)
Quarter: 2021Q4

REPORT INFORMATION
  Report Type: Spontaneous
  Country: FR (occurrence: FR)
  Receive Date: 20211004
  Receipt Date: 20211004
  Transmission Date: 20220303
  Serious: Yes (Other)
  Sender: FDA-Public Use
  Company Number: None

PATIENT
  Age: 21 Year
  Sex: Male

DRUGS (4)
  1. XANAX [Suspect]
     Active Substance: ALPRAZOLAM
     Dosage: UNK
  2. BUTYROLACTONE [Suspect]
     Active Substance: BUTYROLACTONE
     Dosage: 1 TO 2 ML ON ALTERNATE DAY
     Route: 048
  3. OXYCODONE [Suspect]
     Active Substance: OXYCODONE
     Dosage: 80-100 MG DAILY
     Route: 045
  4. CANNABIS SATIVA SUBSP. INDICA TOP [Suspect]
     Active Substance: CANNABIS SATIVA SUBSP. INDICA TOP
     Dosage: 3 JOINTS IN THE EVENING
     Route: 055

REACTIONS (3)
  - Drug dependence [Recovering/Resolving]
  - Drug dependence [Recovering/Resolving]
  - Drug dependence [Recovering/Resolving]
